FAERS Safety Report 22637241 (Version 1)
Quarter: 2023Q2

REPORT INFORMATION
  Report Type: Spontaneous
  Country: US (occurrence: None)
  Receive Date: 20230622
  Receipt Date: 20230622
  Transmission Date: 20230721
  Serious: No
  Sender: FDA-Public Use
  Company Number: None

PATIENT
  Age: 49 Year
  Sex: Female

DRUGS (1)
  1. HUMIRA [Suspect]
     Active Substance: ADALIMUMAB
     Indication: Psoriatic arthropathy
     Dosage: OTHER QUANTITY : 40MG/.4ML;?FREQUENCY : EVERY OTHER WEEK;?
     Dates: start: 20221123

REACTIONS (2)
  - Joint stiffness [None]
  - Pain [None]

NARRATIVE: CASE EVENT DATE: 20230525
